FAERS Safety Report 9176122 (Version 5)
Quarter: 2013Q3

REPORT INFORMATION
  Report Type: Report from Study
  Country: US (occurrence: US)
  Receive Date: 20120920
  Receipt Date: 20130919
  Transmission Date: 20140515
  Serious: Yes (Hospitalization, Other)
  Sender: FDA-Public Use
  Company Number: US-BIOMARINP-003020

PATIENT
  Age: 0 Day
  Sex: Female
  Weight: 2.5 kg

DRUGS (5)
  1. KUVAN [Suspect]
     Indication: PHENYLKETONURIA
     Dosage: 10MG/KG,QD
     Route: 064
  2. KUVAN [Suspect]
     Dosage: 10MG/KG,QD
     Route: 063
  3. PREVACID [Concomitant]
     Indication: PRODUCT USED FOR UNKNOWN INDICATION
     Route: 064
  4. PRENATAL VITAMINS [Concomitant]
     Indication: PRODUCT USED FOR UNKNOWN INDICATION
     Route: 064
  5. VANCOMYCIN [Concomitant]
     Indication: PRODUCT USED FOR UNKNOWN INDICATION
     Route: 064

REACTIONS (4)
  - Hypophagia [Recovered/Resolved]
  - Cleft palate [Recovered/Resolved]
  - Premature baby [Recovered/Resolved]
  - Exposure during breast feeding [Not Recovered/Not Resolved]
